FAERS Safety Report 9443472 (Version 2)
Quarter: 2019Q3

REPORT INFORMATION
  Report Type: Spontaneous
  Country: IT (occurrence: IT)
  Receive Date: 20130806
  Receipt Date: 20190915
  Transmission Date: 20191005
  Serious: Yes (Death, Other)
  Sender: FDA-Public Use
  Company Number: IT-CELGENEUS-083-21880-13073920

PATIENT

DRUGS (1)
  1. REVLIMID [Suspect]
     Active Substance: LENALIDOMIDE
     Indication: 5Q MINUS SYNDROME
     Dosage: 10 MILLIGRAM
     Route: 048
     Dates: start: 200707, end: 201302

REACTIONS (19)
  - Gallbladder cancer [Fatal]
  - Central nervous system haemorrhage [Fatal]
  - Sudden death [Fatal]
  - Abdominal pain [Unknown]
  - Fatigue [Unknown]
  - Acute myeloid leukaemia [Fatal]
  - Deep vein thrombosis [Unknown]
  - Pyrexia [Unknown]
  - Infection [Fatal]
  - Rash [Unknown]
  - Neutropenia [Unknown]
  - Cardiac failure congestive [Fatal]
  - Treatment failure [Unknown]
  - Transaminases increased [Unknown]
  - Headache [Unknown]
  - Pulmonary embolism [Unknown]
  - Thrombocytopenia [Unknown]
  - Diarrhoea [Unknown]
  - Gastrointestinal disorder [Unknown]
